FAERS Safety Report 6261375-4 (Version None)
Quarter: 2009Q3

REPORT INFORMATION
  Report Type: 
  Country: None (occurrence: None)
  Receive Date: 20090709
  Receipt Date: 20090701
  Transmission Date: 20100115
  Serious: Yes (Death)
  Sender: FDA-Public Use
  Company Number: US-PFIZER INC-2009234818

PATIENT
  Sex: Female
  Weight: 81 kg

DRUGS (2)
  1. BEXTRA [Suspect]
     Indication: PAIN
     Dosage: 20 MG, 1X/DAY
     Route: 048
     Dates: start: 20030221
  2. CELEBREX [Suspect]
     Dosage: 200 MG, UNK

REACTIONS (1)
  - SUDDEN CARDIAC DEATH [None]
